FAERS Safety Report 7126632-8 (Version None)
Quarter: 2010Q4

REPORT INFORMATION
  Report Type: 
  Country: None (occurrence: None)
  Receive Date: 20101129
  Receipt Date: 20101119
  Transmission Date: 20110411
  Serious: Yes (Hospitalization)
  Sender: FDA-Public Use
  Company Number: GB-ASTRAZENECA-2010SE55360

PATIENT
  Age: 65 Year
  Sex: Female
  Weight: 130 kg

DRUGS (8)
  1. LISINOPRIL [Suspect]
  2. EXENATIDE [Suspect]
  3. EXENATIDE [Suspect]
  4. METFORMIN [Suspect]
  5. SPIRONOLACTONE [Suspect]
  6. FRUSEMIDE [Concomitant]
  7. ORLISTAT [Concomitant]
  8. LEVEMIR [Concomitant]

REACTIONS (2)
  - RENAL FAILURE ACUTE [None]
  - TUBULOINTERSTITIAL NEPHRITIS [None]
